FAERS Safety Report 8979295 (Version 1)
Quarter: 2012Q4

REPORT INFORMATION
  Report Type: 
  Country: US (occurrence: US)
  Receive Date: 20121221
  Receipt Date: 20121221
  Transmission Date: 20130627
  Serious: Yes (Hospitalization)
  Sender: FDA-Public Use
  Company Number: US-ABBOTT-12P-163-1022419-00

PATIENT
  Sex: Female
  Weight: 76.27 kg

DRUGS (3)
  1. HUMIRA [Suspect]
     Indication: CROHN^S DISEASE
     Dates: start: 201004, end: 201004
  2. HUMIRA [Suspect]
     Dates: start: 201011, end: 201012
  3. HUMIRA [Suspect]
     Dates: start: 20121017

REACTIONS (7)
  - Pyoderma gangrenosum [Recovered/Resolved]
  - Pyoderma gangrenosum [Recovered/Resolved]
  - Infected cyst [Unknown]
  - Necrotising fasciitis [Recovered/Resolved]
  - Crohn^s disease [Not Recovered/Not Resolved]
  - Pain [Not Recovered/Not Resolved]
  - Abdominal pain [Unknown]
